FAERS Safety Report 17008032 (Version 1)
Quarter: 2019Q4

REPORT INFORMATION
  Report Type: Spontaneous
  Country: FR (occurrence: FR)
  Receive Date: 20191108
  Receipt Date: 20191108
  Transmission Date: 20200122
  Serious: Yes (Other)
  Sender: FDA-Public Use
  Company Number: FR-SUN PHARMACEUTICAL INDUSTRIES LTD-2019RR-226742

PATIENT
  Age: 69 Year
  Sex: Female

DRUGS (10)
  1. IPRATROPIUM BROMIDE\FENOTEROL HYDROBROMIDE [Concomitant]
     Active Substance: FENOTEROL HYDROBROMIDE\IPRATROPIUM BROMIDE
     Indication: LUNG DISORDER
     Dosage: 2 DOSAGE FORM, DAILY
     Route: 055
  2. ASPIRINE PROTECT 100 MG, COMPRIME GASTRO-RESISTANT [Concomitant]
     Active Substance: ASPIRIN
     Indication: PROPHYLAXIS AGAINST GASTROINTESTINAL ULCER
     Dosage: 1 DOSAGE FORM, DAILY
     Route: 048
  3. FLECTOR TISSUGEL 1 %, EMPLATRE MEDICAMENTEUX [Concomitant]
     Indication: PRODUCT USED FOR UNKNOWN INDICATION
     Dosage: 3 DOSAGE FORM, DAILY
     Route: 003
  4. AZITHROMYCIN ANHYDROUS. [Suspect]
     Active Substance: AZITHROMYCIN ANHYDROUS
     Indication: LUNG DISORDER
     Dosage: 1 DOSAGE FORM, UNK
     Route: 048
     Dates: start: 20190131, end: 20190131
  5. NABUCOX 500 MG, COMPRIME PELLICULE [Suspect]
     Active Substance: NABUMETONE
     Indication: PRODUCT USED FOR UNKNOWN INDICATION
     Dosage: 2 DOSAGE FORM, DAILY
     Route: 048
  6. SPASFON [Concomitant]
     Indication: ABDOMINAL RIGIDITY
     Dosage: 6 DOSAGE FORM, DAILY
     Route: 048
  7. NEBIVOLOL. [Concomitant]
     Active Substance: NEBIVOLOL
     Indication: ESSENTIAL HYPERTENSION
     Dosage: 1 DOSAGE FORM, DAILY
     Route: 048
  8. LOXEN L P 50 MG, GELULE A LIBERATION PROLONGEE [Concomitant]
     Active Substance: NICARDIPINE HYDROCHLORIDE
     Indication: ESSENTIAL HYPERTENSION
     Dosage: 2 DOSAGE FORM, DAILY
     Route: 048
  9. EZETROL 10 MG, COMPRIME [Concomitant]
     Active Substance: EZETIMIBE
     Indication: HYPERCHOLESTEROLAEMIA
     Dosage: 1 DOSAGE FORM, DAILY
     Route: 048
  10. ROPINIROLE (CHLORHYDRATE DE) [Concomitant]
     Active Substance: ROPINIROLE HYDROCHLORIDE
     Indication: PRODUCT USED FOR UNKNOWN INDICATION
     Dosage: 0.5 MILLIGRAM, DAILY
     Route: 048

REACTIONS (4)
  - Purpura [Recovered/Resolved]
  - Mouth ulceration [Recovered/Resolved]
  - Haematuria [Recovered/Resolved]
  - Thrombocytopenia [Recovered/Resolved]

NARRATIVE: CASE EVENT DATE: 20190202
